FAERS Safety Report 5074184-9 (Version None)
Quarter: 2006Q3

REPORT INFORMATION
  Report Type: 
  Country: None (occurrence: None)
  Receive Date: 20060803
  Receipt Date: 20060719
  Transmission Date: 20061208
  Serious: Yes (Other)
  Sender: FDA-Public Use
  Company Number: JP200606003946

PATIENT
  Age: 71 Year
  Sex: Female
  Weight: 52.4 kg

DRUGS (4)
  1. EVISTA [Suspect]
     Indication: OSTEOPOROSIS
     Dosage: 60 MG, DAILY (1/D), ORAL
     Route: 048
     Dates: start: 20051102, end: 20060607
  2. TIZANIDINE HCL [Concomitant]
  3. DEPAS (ETIZOLAM) [Concomitant]
  4. DIOVAN [Concomitant]

REACTIONS (1)
  - PLATELET COUNT DECREASED [None]
